FAERS Safety Report 17835078 (Version 1)
Quarter: 2020Q2

REPORT INFORMATION
  Report Type: Spontaneous
  Country: ES (occurrence: ES)
  Receive Date: 20200528
  Receipt Date: 20200528
  Transmission Date: 20200714
  Serious: Yes (Death, Other)
  Sender: FDA-Public Use
  Company Number: ES-ACCORD-183327

PATIENT
  Age: 90 Year
  Sex: Female

DRUGS (4)
  1. HYDROXYCHLOROQUINE [Suspect]
     Active Substance: HYDROXYCHLOROQUINE
     Indication: COVID-19 PNEUMONIA
     Dosage: 400 MG DAY
     Route: 048
     Dates: start: 20200407, end: 20200413
  2. FUROSEMIDE. [Concomitant]
     Active Substance: FUROSEMIDE
     Route: 048
     Dates: start: 20200408, end: 20200408
  3. MORPHINE [Suspect]
     Active Substance: MORPHINE
     Indication: SEDATION
     Dosage: SEDATION
     Route: 042
     Dates: start: 20200410, end: 20200414
  4. CEFTRIAXONE. [Suspect]
     Active Substance: CEFTRIAXONE
     Indication: COVID-19 PNEUMONIA
     Dosage: 2 GR
     Route: 042
     Dates: start: 20200407, end: 20200413

REACTIONS (2)
  - Off label use [Unknown]
  - Hyponatraemia [Not Recovered/Not Resolved]

NARRATIVE: CASE EVENT DATE: 20200413
